FAERS Safety Report 5225869-2 (Version None)
Quarter: 2007Q1

REPORT INFORMATION
  Report Type: 
  Country: None (occurrence: None)
  Receive Date: 20070201
  Receipt Date: 20070124
  Transmission Date: 20070707
  Serious: Yes (Hospitalization)
  Sender: FDA-Public Use
  Company Number: HQWYE620105JAN07

PATIENT
  Age: 73 Year
  Sex: Male

DRUGS (9)
  1. CORDARONE [Suspect]
     Route: 048
     Dates: start: 20061104
  2. POLARAMINE [Suspect]
     Dosage: 1 UNIT DAILY
     Route: 042
     Dates: start: 20061103, end: 20061121
  3. ROCEPHIN [Suspect]
     Dosage: 1 G DAILY
     Route: 042
     Dates: start: 20061103, end: 20061120
  4. INSULIN [Concomitant]
     Indication: DIABETES MELLITUS
     Dosage: UNSPECIFIED
  5. NEURONTIN [Suspect]
     Dosage: 3 UNITS DAILY/800 MG DAILY
     Route: 048
  6. APROVEL [Concomitant]
     Dosage: UNSPECIFIED
  7. LASIX [Concomitant]
     Dosage: UNSPECIFIED
     Route: 048
  8. FUNGIZONE [Suspect]
     Dosage: 80 MG DAILY
     Route: 042
     Dates: start: 20061103, end: 20061121
  9. OMEPRAZOLE [Suspect]
     Dosage: 1 UNIT DAILY
     Route: 048

REACTIONS (3)
  - ANAEMIA [None]
  - CONDITION AGGRAVATED [None]
  - THROMBOCYTOPENIA [None]
